FAERS Safety Report 24899572 (Version 1)
Quarter: 2025Q1

REPORT INFORMATION
  Report Type: Spontaneous
  Country: JP (occurrence: JP)
  Receive Date: 20250129
  Receipt Date: 20250129
  Transmission Date: 20250409
  Serious: Yes (Other)
  Sender: PFIZER
  Company Number: JP-PFIZER INC-202500017401

PATIENT
  Age: 91 Year
  Sex: Male

DRUGS (1)
  1. ESTRAMUSTINE [Suspect]
     Active Substance: ESTRAMUSTINE
     Route: 048

REACTIONS (1)
  - Cerebral infarction [Unknown]
